FAERS Safety Report 5102441-6 (Version None)
Quarter: 2006Q3

REPORT INFORMATION
  Report Type: 
  Country: None (occurrence: None)
  Receive Date: 20060731
  Receipt Date: 20060524
  Transmission Date: 20061208
  Serious: No
  Sender: FDA-Public Use
  Company Number: 2006PV014454

PATIENT
  Age: 62 Year
  Sex: Female
  Weight: 136.0791 kg

DRUGS (5)
  1. BYETTA [Suspect]
     Indication: DIABETES MELLITUS NON-INSULIN-DEPENDENT
     Dosage: BID;SC
     Route: 058
     Dates: start: 20060401, end: 20060501
  2. DILTIAZEM HCL [Concomitant]
  3. ENALAPRIL [Concomitant]
  4. ASPIRIN [Concomitant]
  5. TRIAMTERENE [Concomitant]

REACTIONS (4)
  - CONFUSIONAL STATE [None]
  - EMOTIONAL DISTRESS [None]
  - MEMORY IMPAIRMENT [None]
  - MENTAL IMPAIRMENT [None]
